FAERS Safety Report 25633031 (Version 7)
Quarter: 2025Q4

REPORT INFORMATION
  Report Type: Spontaneous
  Country: US (occurrence: US)
  Receive Date: 20250801
  Receipt Date: 20251103
  Transmission Date: 20260117
  Serious: Yes (Hospitalization, Other)
  Sender: BLUEPRINT MEDICINES
  Company Number: US-Blueprint Medicines Corporation-2025-AER-01664

PATIENT
  Age: 67 Year
  Sex: Male

DRUGS (4)
  1. AYVAKIT [Suspect]
     Active Substance: AVAPRITINIB
     Indication: Gastrointestinal stromal tumour
     Route: 065
     Dates: start: 20250619
  2. AYVAKIT [Suspect]
     Active Substance: AVAPRITINIB
     Route: 065
     Dates: start: 20250619
  3. AYVAKIT [Suspect]
     Active Substance: AVAPRITINIB
     Route: 048
     Dates: start: 20250619
  4. QINLOCK [Suspect]
     Active Substance: RIPRETINIB
     Indication: Gastrointestinal stromal tumour
     Route: 065

REACTIONS (9)
  - Neoplasm malignant [Unknown]
  - Malignant neoplasm progression [Unknown]
  - Metastasis [Unknown]
  - Diaphragmatic disorder [Unknown]
  - Peritoneal disorder [Unknown]
  - Pain [Unknown]
  - Liver disorder [Unknown]
  - Eye pruritus [Unknown]
  - Muscle spasticity [Unknown]
